FAERS Safety Report 16197026 (Version 1)
Quarter: 2019Q2

REPORT INFORMATION
  Report Type: Spontaneous
  Country: US (occurrence: US)
  Receive Date: 20190415
  Receipt Date: 20190415
  Transmission Date: 20190711
  Serious: No
  Sender: FDA-Public Use
  Company Number: US-PFIZER INC-2019150807

PATIENT
  Sex: Female

DRUGS (2)
  1. ADVIL LIQUI-GELS [Suspect]
     Active Substance: IBUPROFEN
     Dosage: UP TO 600 MG EVERY 3-4 HOURS
  2. ADVIL LIQUI-GELS [Suspect]
     Active Substance: IBUPROFEN
     Indication: PAIN
     Dosage: UNK

REACTIONS (5)
  - Eye swelling [Unknown]
  - Drug ineffective [Unknown]
  - Product use issue [Unknown]
  - Swelling face [Unknown]
  - Swelling [Not Recovered/Not Resolved]
